FAERS Safety Report 11709361 (Version 1)
Quarter: 2015Q4

REPORT INFORMATION
  Report Type: Spontaneous
  Country: US (occurrence: US)
  Receive Date: 20151104
  Receipt Date: 20151104
  Transmission Date: 20160304
  Serious: No
  Sender: FDA-Public Use
  Company Number: US-ELI_LILLY_AND_COMPANY-US201105004385

PATIENT
  Age: 63 Year
  Sex: Female

DRUGS (2)
  1. FORTEO [Suspect]
     Active Substance: TERIPARATIDE
     Indication: OSTEOPOROSIS
     Dosage: 20 UG, QD
     Route: 065
  2. FORTEO [Suspect]
     Active Substance: TERIPARATIDE
     Dosage: 20 UG, QD
     Route: 065
     Dates: end: 20110723

REACTIONS (9)
  - Injection site bruising [Recovering/Resolving]
  - Hyperhidrosis [Unknown]
  - Adverse reaction [Unknown]
  - Renal pain [Unknown]
  - Injection site streaking [Recovered/Resolved]
  - Anxiety [Unknown]
  - Intentional product misuse [Unknown]
  - Nausea [Recovered/Resolved]
  - Injection site erythema [Unknown]

NARRATIVE: CASE EVENT DATE: 20110723
